FAERS Safety Report 9774363 (Version 4)
Quarter: 2014Q2

REPORT INFORMATION
  Report Type: Spontaneous
  Country: SE (occurrence: SE)
  Receive Date: 20131220
  Receipt Date: 20140522
  Transmission Date: 20141212
  Serious: Yes (Life-Threatening, Other)
  Sender: FDA-Public Use
  Company Number: SE-JNJFOC-20131211166

PATIENT
  Age: 36 Year
  Sex: Female

DRUGS (6)
  1. REMICADE [Suspect]
     Indication: CROHN^S DISEASE
     Route: 042
     Dates: start: 201104, end: 20131007
  2. PURI-NETHOL [Suspect]
     Indication: CROHN^S DISEASE
     Dosage: EVERY OTHER DAY
     Route: 048
  3. CALCICHEW-D3 [Concomitant]
     Route: 048
  4. BEHEPAN [Concomitant]
     Route: 048
  5. FOLACIN [Concomitant]
     Route: 048
  6. DIMOR [Concomitant]
     Route: 048

REACTIONS (1)
  - Hodgkin^s disease [Not Recovered/Not Resolved]
